FAERS Safety Report 17253440 (Version 1)
Quarter: 2020Q1

REPORT INFORMATION
  Report Type: Spontaneous
  Country: US (occurrence: US)
  Receive Date: 20200109
  Receipt Date: 20200109
  Transmission Date: 20200409
  Serious: No
  Sender: FDA-Public Use
  Company Number: US-PERSON AND COVEY-2078756

PATIENT
  Sex: Female

DRUGS (1)
  1. DHS BODY WASH [Suspect]
     Active Substance: PYRITHIONE ZINC
     Indication: PERSONAL HYGIENE
     Route: 061

REACTIONS (1)
  - Pruritus [Unknown]
